FAERS Safety Report 19750976 (Version 1)
Quarter: 2021Q3

REPORT INFORMATION
  Report Type: Spontaneous
  Country: RU (occurrence: RU)
  Receive Date: 20210826
  Receipt Date: 20210826
  Transmission Date: 20211014
  Serious: Yes (Hospitalization)
  Sender: FDA-Public Use
  Company Number: RU-BAYER-2021-196140

PATIENT
  Age: 49 Year
  Sex: Female

DRUGS (2)
  1. AVELOX [Suspect]
     Active Substance: MOXIFLOXACIN HYDROCHLORIDE
     Dosage: 400 MG, QD
     Route: 048
     Dates: start: 20190831, end: 20190909
  2. METHYLPREDNISOLONE. [Concomitant]
     Active Substance: METHYLPREDNISOLONE
     Indication: RADIATION PNEUMONITIS
     Dosage: 4 MG, QID
     Route: 048
     Dates: start: 20190315, end: 20191210

REACTIONS (2)
  - Breast abscess [Recovered/Resolved]
  - Implant site abscess [Recovered/Resolved]

NARRATIVE: CASE EVENT DATE: 20191102
